FAERS Safety Report 15366769 (Version 1)
Quarter: 2018Q3

REPORT INFORMATION
  Report Type: Report from Study
  Country: US (occurrence: US)
  Receive Date: 20180910
  Receipt Date: 20180910
  Transmission Date: 20181010
  Serious: Yes (Hospitalization)
  Sender: FDA-Public Use
  Company Number: US-PFIZER INC-2018360421

PATIENT
  Age: 70 Year
  Sex: Male
  Weight: 99.3 kg

DRUGS (2)
  1. IRINOTECAN HCL [Suspect]
     Active Substance: IRINOTECAN HYDROCHLORIDE
     Indication: SMALL CELL LUNG CANCER
     Dosage: UNK
     Route: 041
     Dates: start: 20180820
  2. DINUTUXIMAB [Suspect]
     Active Substance: DINUTUXIMAB
     Indication: SMALL CELL LUNG CANCER
     Dosage: 160 MG/M2, TOTAL DAILY DOSE, CYCLE 1
     Route: 041
     Dates: start: 20180820

REACTIONS (1)
  - Infusion related reaction [Recovered/Resolved]

NARRATIVE: CASE EVENT DATE: 20180820
